FAERS Safety Report 5477886-5 (Version None)
Quarter: 2007Q4

REPORT INFORMATION
  Report Type: 
  Country: None (occurrence: None)
  Receive Date: 20071005
  Receipt Date: 20070926
  Transmission Date: 20080405
  Serious: Yes (Hospitalization)
  Sender: FDA-Public Use
  Company Number: PHHO2007US08802

PATIENT
  Age: 76 Year
  Sex: Male
  Weight: 84.8 kg

DRUGS (10)
  1. LOTREL [Suspect]
     Indication: HYPERTENSION
     Dosage: LEVEL 1
     Route: 048
     Dates: start: 20040518
  2. LOTREL [Suspect]
     Dosage: LEVEL 3
     Route: 048
     Dates: start: 20061227, end: 20070701
  3. METFORMIN HCL [Concomitant]
     Indication: TYPE 2 DIABETES MELLITUS
  4. SIMVASTATIN [Concomitant]
  5. PLAVIX [Concomitant]
     Indication: PERIPHERAL ARTERIAL OCCLUSIVE DISEASE
     Dosage: UNK, UNK
     Dates: start: 20070523
  6. ASPIRIN [Concomitant]
     Indication: PERIPHERAL ARTERIAL OCCLUSIVE DISEASE
  7. INSULIN [Concomitant]
  8. GLUCOPHAGE [Concomitant]
  9. ZOCOR [Concomitant]
     Indication: HYPERCHOLESTEROLAEMIA
  10. FLOMAX [Concomitant]
     Dosage: 0.4 MG, QD
     Route: 048

REACTIONS (27)
  - ANGIOPATHY [None]
  - ANGIOPLASTY [None]
  - ARTERIAL BYPASS OPERATION [None]
  - BLOOD CREATININE INCREASED [None]
  - BLOOD POTASSIUM DECREASED [None]
  - CLAVICLE FRACTURE [None]
  - CONCOMITANT DISEASE PROGRESSION [None]
  - DEHYDRATION [None]
  - DIABETES MELLITUS INADEQUATE CONTROL [None]
  - FALL [None]
  - HYPERGLYCAEMIA [None]
  - HYPOTENSION [None]
  - HYPOVOLAEMIA [None]
  - IMPAIRED HEALING [None]
  - INCONTINENCE [None]
  - LEUKOCYTOSIS [None]
  - NORMOCHROMIC NORMOCYTIC ANAEMIA [None]
  - OSTEOARTHRITIS [None]
  - PAIN IN EXTREMITY [None]
  - PERIPHERAL ARTERIAL OCCLUSIVE DISEASE [None]
  - RENAL FAILURE [None]
  - SKIN ULCER [None]
  - STENT OCCLUSION [None]
  - STENT PLACEMENT [None]
  - STRESS [None]
  - URINARY RETENTION [None]
  - URINARY TRACT INFECTION [None]
